FAERS Safety Report 16591345 (Version 3)
Quarter: 2019Q3

REPORT INFORMATION
  Report Type: Not Available
  Country: US (occurrence: US)
  Receive Date: 20190718
  Receipt Date: 20190819
  Transmission Date: 20191004
  Serious: No
  Sender: FDA-Public Use
  Company Number: US-NEUROCRINE BIOSCIENCES INC.-2019NBI01876

PATIENT
  Age: 81 Year
  Sex: Male

DRUGS (13)
  1. POTASSIUM CHLORIDE. [Concomitant]
     Active Substance: POTASSIUM CHLORIDE
  2. ELIQUIS [Concomitant]
     Active Substance: APIXABAN
  3. INGREZZA [Suspect]
     Active Substance: VALBENAZINE
     Route: 048
     Dates: start: 20190702, end: 201907
  4. GABAPENTIN. [Concomitant]
     Active Substance: GABAPENTIN
  5. LISINOPRIL. [Concomitant]
     Active Substance: LISINOPRIL
  6. METOPROLOL. [Concomitant]
     Active Substance: METOPROLOL
  7. INGREZZA [Suspect]
     Active Substance: VALBENAZINE
     Indication: TARDIVE DYSKINESIA
     Route: 048
     Dates: start: 20190624, end: 20190701
  8. OMEPRAZOLE. [Concomitant]
     Active Substance: OMEPRAZOLE
  9. INGREZZA [Suspect]
     Active Substance: VALBENAZINE
     Route: 048
     Dates: start: 201907, end: 2019
  10. FUROSEMIDE. [Concomitant]
     Active Substance: FUROSEMIDE
  11. ASPIRIN. [Concomitant]
     Active Substance: ASPIRIN
  12. EZETIMIBE. [Concomitant]
     Active Substance: EZETIMIBE
  13. VITAMIN D3 [Concomitant]
     Active Substance: CHOLECALCIFEROL

REACTIONS (4)
  - Drooling [Recovered/Resolved]
  - Somnolence [Recovered/Resolved]
  - Balance disorder [Recovered/Resolved]
  - Feeling abnormal [Recovered/Resolved]

NARRATIVE: CASE EVENT DATE: 20190702
